FAERS Safety Report 7597792-X (Version None)
Quarter: 2011Q3

REPORT INFORMATION
  Report Type: 
  Country: None (occurrence: None)
  Receive Date: 20110708
  Receipt Date: 20110630
  Transmission Date: 20111222
  Serious: Yes (Hospitalization, Other)
  Sender: FDA-Public Use
  Company Number: US-ABBOTT-11P-163-0715419-00

PATIENT
  Sex: Female
  Weight: 65.83 kg

DRUGS (5)
  1. TRAMADOL HCL [Concomitant]
     Indication: PRODUCT USED FOR UNKNOWN INDICATION
  2. CORDARONE [Concomitant]
     Indication: PRODUCT USED FOR UNKNOWN INDICATION
  3. CADUET [Concomitant]
     Indication: PRODUCT USED FOR UNKNOWN INDICATION
  4. ULTRAVATE [Concomitant]
     Indication: PRODUCT USED FOR UNKNOWN INDICATION
     Dosage: PAC OINTMENT
  5. HUMIRA [Suspect]
     Indication: PSORIASIS
     Route: 058
     Dates: start: 20110101, end: 20110321

REACTIONS (9)
  - LOCAL SWELLING [None]
  - ABSCESS LIMB [None]
  - CHILLS [None]
  - OEDEMA PERIPHERAL [None]
  - SKIN TIGHTNESS [None]
  - LYMPHADENOPATHY [None]
  - ERYTHEMA [None]
  - JOINT SWELLING [None]
  - CELLULITIS [None]
